FAERS Safety Report 8842480 (Version 1)
Quarter: 2012Q4

REPORT INFORMATION
  Report Type: Spontaneous
  Country: US (occurrence: None)
  Receive Date: 20121012
  Receipt Date: 20121012
  Transmission Date: 20130627
  Serious: Yes (Other)
  Sender: FDA-Public Use
  Company Number: None

PATIENT
  Age: 75 Year
  Sex: Female
  Weight: 72.12 kg

DRUGS (1)
  1. SUPRAX [Suspect]
     Indication: BLADDER INFECTION
     Dosage: 400 mg- 5 tablets
     Dates: start: 20120820, end: 20120825

REACTIONS (2)
  - Diarrhoea [None]
  - Disbacteriosis [None]
